FAERS Safety Report 7117867-9 (Version None)
Quarter: 2010Q4

REPORT INFORMATION
  Report Type: 
  Country: None (occurrence: None)
  Receive Date: 20101118
  Receipt Date: 20101118
  Transmission Date: 20110411
  Serious: Yes (Hospitalization)
  Sender: FDA-Public Use
  Company Number: None

PATIENT
  Age: 47 Year
  Sex: Female

DRUGS (1)
  1. TRI-SPRINTEC [Suspect]
     Dosage: 1 TAB DAILY ORAL (PO)
     Route: 048
     Dates: start: 20091005, end: 20101005

REACTIONS (1)
  - PULMONARY EMBOLISM [None]
